FAERS Safety Report 19690309 (Version 1)
Quarter: 2021Q3

REPORT INFORMATION
  Report Type: Report from Study
  Country: US (occurrence: US)
  Receive Date: 20210812
  Receipt Date: 20210812
  Transmission Date: 20211014
  Serious: Yes (Other)
  Sender: FDA-Public Use
  Company Number: US-EMD SERONO-9256634

PATIENT
  Age: 54 Year
  Sex: Female

DRUGS (2)
  1. MAVENCLAD [Suspect]
     Active Substance: CLADRIBINE
     Dosage: YEAR TWO THERAPY
     Route: 048
  2. MAVENCLAD [Suspect]
     Active Substance: CLADRIBINE
     Indication: MULTIPLE SCLEROSIS
     Dosage: YEAR ONE THERAPY
     Route: 048
     Dates: start: 20190913

REACTIONS (7)
  - Retinal disorder [Unknown]
  - Fall [Unknown]
  - Spinal cord oedema [Recovering/Resolving]
  - Gait disturbance [Unknown]
  - Frustration tolerance decreased [Unknown]
  - Pain [Unknown]
  - Quality of life decreased [Unknown]
